FAERS Safety Report 6025048-5 (Version None)
Quarter: 2008Q4

REPORT INFORMATION
  Report Type: 
  Country: None (occurrence: None)
  Receive Date: 20081230
  Receipt Date: 20081230
  Transmission Date: 20090506
  Serious: Yes (Other)
  Sender: FDA-Public Use
  Company Number: None

PATIENT
  Age: 46 Year
  Sex: Female
  Weight: 49.8957 kg

DRUGS (2)
  1. FLAGYL [Suspect]
     Indication: DIVERTICULITIS
     Dosage: 1 PILL 3 TIMES PO
     Route: 048
     Dates: start: 20081003, end: 20081007
  2. BACTRIM DS [Suspect]
     Indication: DIVERTICULITIS
     Dosage: 1 PILL 2 TIMES PO
     Route: 048
     Dates: start: 20081003, end: 20081007

REACTIONS (8)
  - ANOREXIA [None]
  - DEHYDRATION [None]
  - DIZZINESS [None]
  - HYPOPHAGIA [None]
  - NAUSEA [None]
  - RETCHING [None]
  - VOMITING [None]
  - WEIGHT DECREASED [None]
